FAERS Safety Report 6317070-6 (Version None)
Quarter: 2009Q3

REPORT INFORMATION
  Report Type: 
  Country: None (occurrence: None)
  Receive Date: 20090820
  Receipt Date: 20090819
  Transmission Date: 20100115
  Serious: Yes (Other)
  Sender: FDA-Public Use
  Company Number: US-AMGEN-US356812

PATIENT
  Sex: Female
  Weight: 62.2 kg

DRUGS (5)
  1. NPLATE [Suspect]
     Indication: IDIOPATHIC THROMBOCYTOPENIC PURPURA
     Route: 058
     Dates: start: 20081125
  2. FOSAMAX [Concomitant]
  3. VITAMIN D [Concomitant]
  4. FISH OIL [Concomitant]
  5. TYLENOL (CAPLET) [Concomitant]

REACTIONS (3)
  - LYME DISEASE [None]
  - RASH [None]
  - WHITE BLOOD CELL COUNT INCREASED [None]
